FAERS Safety Report 8855048 (Version 1)
Quarter: 2012Q4

REPORT INFORMATION
  Report Type: 
  Country: FR (occurrence: FR)
  Receive Date: 20121023
  Receipt Date: 20121023
  Transmission Date: 20130627
  Serious: Yes (Hospitalization)
  Sender: FDA-Public Use
  Company Number: FR-SANOFI-AVENTIS-2012SA075391

PATIENT
  Age: 91 Year
  Sex: Male

DRUGS (12)
  1. LASILIX [Suspect]
     Indication: HYPERTENSION ARTERIAL
     Route: 048
     Dates: end: 20120728
  2. KARDEGIC [Suspect]
     Indication: DRUG USE FOR UNKNOWN INDICATION
     Route: 048
  3. KARDEGIC [Suspect]
     Indication: DRUG USE FOR UNKNOWN INDICATION
     Route: 048
  4. PRETERAX [Suspect]
     Indication: HYPERTENSION ARTERIAL
     Route: 048
     Dates: end: 20120727
  5. ALLOPURINOL [Suspect]
     Indication: DRUG USE FOR UNKNOWN INDICATION
     Route: 048
     Dates: end: 20120728
  6. DIFFU K [Suspect]
     Indication: HYPERTENSIVE CARDIOMYOPATHY
     Route: 048
     Dates: end: 20120728
  7. PARIET [Suspect]
     Indication: DRUG USE FOR UNKNOWN INDICATION
     Route: 048
     Dates: end: 20120731
  8. BISOPROLOL [Concomitant]
  9. ANANDRON [Concomitant]
  10. FERROUS SULFATE [Concomitant]
  11. PLAVIX [Concomitant]
     Route: 048
  12. SMECTITE [Concomitant]

REACTIONS (2)
  - Malaise [Recovered/Resolved]
  - Hyponatraemia [Recovered/Resolved]
